FAERS Safety Report 5795535-3 (Version None)
Quarter: 2008Q2

REPORT INFORMATION
  Report Type: 
  Country: None (occurrence: None)
  Receive Date: 20080630
  Receipt Date: 20080620
  Transmission Date: 20081010
  Serious: Yes (Hospitalization)
  Sender: FDA-Public Use
  Company Number: EE-PFIZER INC-2008047957

PATIENT
  Age: 76 Year
  Sex: Female

DRUGS (8)
  1. LYRICA [Suspect]
     Indication: PAIN
     Route: 048
  2. LYRICA [Suspect]
     Indication: NEURALGIA
  3. AMITRIPTYLINE HCL [Concomitant]
     Route: 048
  4. RENITEC [Concomitant]
     Dosage: DAILY DOSE:15MG
     Route: 048
  5. PREDNISOLONE [Concomitant]
     Route: 048
  6. ALLOPURINOL [Concomitant]
     Route: 048
  7. DYNAMAG [Concomitant]
     Route: 048
  8. ASCORUTIN [Concomitant]
     Route: 048

REACTIONS (2)
  - MUSCLE SPASMS [None]
  - POLYMYALGIA RHEUMATICA [None]
